FAERS Safety Report 18549156 (Version 2)
Quarter: 2021Q1

REPORT INFORMATION
  Report Type: Spontaneous
  Country: FR (occurrence: FR)
  Receive Date: 20201126
  Receipt Date: 20210305
  Transmission Date: 20210419
  Serious: Yes (Hospitalization)
  Sender: FDA-Public Use
  Company Number: FR-SA-2020SA339977

PATIENT
  Age: 73 Year
  Sex: Male
  Weight: 71 kg

DRUGS (2)
  1. DUPIXENT [Suspect]
     Active Substance: DUPILUMAB
     Indication: ECZEMA
     Dosage: 300 MG
     Dates: start: 20190204
  2. DUPIXENT [Suspect]
     Active Substance: DUPILUMAB
     Indication: ABDOMINAL PAIN

REACTIONS (3)
  - Gallbladder disorder [Unknown]
  - Product use in unapproved indication [Unknown]
  - Pancreatic disorder [Unknown]
